FAERS Safety Report 9663358 (Version 1)
Quarter: 2013Q4

REPORT INFORMATION
  Report Type: Other
  Country: US (occurrence: US)
  Receive Date: 20131101
  Receipt Date: 20131101
  Transmission Date: 20140711
  Serious: Yes (Hospitalization, Other)
  Sender: FDA-Public Use
  Company Number: US-BRISTOL-MYERS SQUIBB COMPANY-19696970

PATIENT
  Age: 58 Year
  Sex: Female

DRUGS (3)
  1. METFORMIN HCL [Suspect]
  2. DILTIAZEM HCL [Suspect]
     Dosage: 1DF: 30-40 PILLS
  3. INSULIN [Suspect]
     Indication: TOXICITY TO VARIOUS AGENTS
     Dosage: 1DF: CONCENTRATION OF 1 U/MT AT A RATE OF 1 U/KG/HR AND TITRATED TO A MAXIMUM OF 6 U/KG/HR

REACTIONS (7)
  - Atrioventricular block first degree [Recovered/Resolved]
  - Hypotension [Recovered/Resolved]
  - Respiratory failure [Recovered/Resolved]
  - Pulmonary oedema [Recovered/Resolved]
  - Generalised oedema [Recovered/Resolved]
  - Fluid overload [Recovered/Resolved]
  - Poisoning deliberate [Recovered/Resolved]
